FAERS Safety Report 8473548-0 (Version None)
Quarter: 2012Q2

REPORT INFORMATION
  Report Type: 
  Country: None (occurrence: None)
  Receive Date: 20120621
  Receipt Date: 20120606
  Transmission Date: 20120825
  Serious: Yes (Hospitalization, Other)
  Sender: FDA-Public Use
  Company Number: 2011MA001492

PATIENT
  Sex: Female
  Weight: 67.1324 kg

DRUGS (50)
  1. BENZONATATE [Concomitant]
  2. CLONAZEPAM [Concomitant]
  3. HYDROCHLOROTHIAZIDE [Concomitant]
  4. KLONOPIN [Concomitant]
  5. ASPIRIN [Concomitant]
  6. LACTULOSE [Concomitant]
  7. LORTAB [Concomitant]
  8. METOPROLOL SUCCINATE [Concomitant]
  9. PAXIL [Concomitant]
  10. PRAVACHOL [Concomitant]
  11. VICODIN [Concomitant]
  12. CARAFATE [Concomitant]
  13. CLARITIN [Concomitant]
  14. CRESTOR [Concomitant]
  15. NEXIUM [Concomitant]
  16. PROCARDIA [Concomitant]
  17. PROMETHAZINE [Concomitant]
  18. VITAMIN D [Concomitant]
  19. BUSPAR [Concomitant]
  20. CYCLOBENZAPRINE [Concomitant]
  21. DOCUSATE [Concomitant]
  22. FERROUS SULFATE TAB [Concomitant]
  23. PREVACID [Concomitant]
  24. PROPRANOLOL [Concomitant]
  25. RELPAX [Concomitant]
  26. ZOLOFT [Concomitant]
  27. DARVOCET [Concomitant]
  28. FLONASE [Concomitant]
  29. GEMFIBROZIL [Concomitant]
  30. PHENERGAN HCL [Concomitant]
  31. PRINIVIL [Concomitant]
  32. ALLEGRA [Concomitant]
  33. MUCINEX [Concomitant]
  34. NORVASC [Concomitant]
  35. ACCUPRIL [Concomitant]
  36. FLEXERIL [Concomitant]
  37. NITROGLYCERIN [Concomitant]
  38. PREDNISONE [Concomitant]
  39. TRICOR [Concomitant]
  40. ZELNORM [Concomitant]
  41. ZOFRAN [Concomitant]
  42. METOCLOPRAMIDE [Suspect]
     Indication: GASTROOESOPHAGEAL REFLUX DISEASE
     Dosage: ; PO
     Route: 048
     Dates: start: 20050301, end: 20100401
  43. METOCLOPRAMIDE [Suspect]
     Indication: IMPAIRED GASTRIC EMPTYING
     Dosage: ; PO
     Route: 048
     Dates: start: 20050301, end: 20100401
  44. METOCLOPRAMIDE [Suspect]
     Indication: LIVER SARCOIDOSIS
     Dosage: ; PO
     Route: 048
     Dates: start: 20050301, end: 20100401
  45. METOCLOPRAMIDE [Suspect]
     Indication: NAUSEA
     Dosage: ; PO
     Route: 048
     Dates: start: 20050301, end: 20100401
  46. ERYTHROMYCIN [Concomitant]
  47. INFLUENZA VACCINE [Concomitant]
  48. MIDRIN [Concomitant]
  49. POTASSIUM [Concomitant]
  50. TRAMADOL HCL [Concomitant]

REACTIONS (50)
  - INJURY [None]
  - TOOTHACHE [None]
  - PAIN [None]
  - DECREASED APPETITE [None]
  - CARDIAC MURMUR [None]
  - PEPTIC ULCER [None]
  - HEPATIC PAIN [None]
  - BLOOD POTASSIUM DECREASED [None]
  - TOOTH INFECTION [None]
  - RHINITIS ALLERGIC [None]
  - GASTRITIS HAEMORRHAGIC [None]
  - TARDIVE DYSKINESIA [None]
  - DIARRHOEA [None]
  - ENTERITIS [None]
  - IMPAIRED GASTRIC EMPTYING [None]
  - HAEMOCHROMATOSIS [None]
  - FACIAL PAIN [None]
  - ACUTE SINUSITIS [None]
  - EXTRAPYRAMIDAL DISORDER [None]
  - GASTROINTESTINAL HAEMORRHAGE [None]
  - GASTROOESOPHAGEAL REFLUX DISEASE [None]
  - VOMITING [None]
  - PANCREATITIS CHRONIC [None]
  - DENTAL CARIES [None]
  - HEPATITIS [None]
  - CHOLECYSTECTOMY [None]
  - ECONOMIC PROBLEM [None]
  - ANXIETY [None]
  - HEPATIC STEATOSIS [None]
  - COLITIS ISCHAEMIC [None]
  - POSTMENOPAUSE [None]
  - LIVER SARCOIDOSIS [None]
  - GASTRIC ULCER [None]
  - GASTROINTESTINAL VIRAL INFECTION [None]
  - SARCOIDOSIS [None]
  - HYPERLIPIDAEMIA [None]
  - SCLEROTHERAPY [None]
  - STRESS [None]
  - TOOTH FRACTURE [None]
  - HYPOKALAEMIA [None]
  - EMOTIONAL DISORDER [None]
  - HEPATOMEGALY [None]
  - IRRITABLE BOWEL SYNDROME [None]
  - CROHN'S DISEASE [None]
  - HYPERTENSION [None]
  - ANAEMIA [None]
  - NASAL CONGESTION [None]
  - DEPRESSION [None]
  - GRIEF REACTION [None]
  - OESOPHAGITIS [None]
